FAERS Safety Report 24258183 (Version 3)
Quarter: 2024Q4

REPORT INFORMATION
  Report Type: Spontaneous
  Country: CA (occurrence: CA)
  Receive Date: 20240828
  Receipt Date: 20241120
  Transmission Date: 20250115
  Serious: Yes (Other)
  Sender: ROCHE
  Company Number: CA-ROCHE-10000061296

PATIENT
  Age: 77 Year
  Sex: Female
  Weight: 103.5 kg

DRUGS (16)
  1. ACTEMRA [Suspect]
     Active Substance: TOCILIZUMAB
     Indication: Rheumatoid arthritis
     Route: 042
     Dates: start: 20121213
  2. ACTEMRA [Suspect]
     Active Substance: TOCILIZUMAB
     Route: 042
     Dates: start: 20121213
  3. BIOTIN [Concomitant]
     Active Substance: BIOTIN
  4. MAGNESIUM [Concomitant]
     Active Substance: MAGNESIUM
  5. MINERALS\VITAMINS [Concomitant]
     Active Substance: MINERALS\VITAMINS
  6. SPIRONOLACTONE [Concomitant]
     Active Substance: SPIRONOLACTONE
  7. LABETALOL [Concomitant]
     Active Substance: LABETALOL
  8. VITAMIN C [Concomitant]
     Active Substance: ASCORBIC ACID
  9. PANTOPRAZOLE [Concomitant]
     Active Substance: PANTOPRAZOLE
  10. BACLOFEN [Concomitant]
     Active Substance: BACLOFEN
  11. ARTHROTEC [Concomitant]
     Active Substance: DICLOFENAC SODIUM\MISOPROSTOL
  12. AMITRIPTYLINE [Concomitant]
     Active Substance: AMITRIPTYLINE
  13. PERCOCET [Concomitant]
     Active Substance: ACETAMINOPHEN\OXYCODONE HYDROCHLORIDE
  14. ROSUVASTATIN [Concomitant]
     Active Substance: ROSUVASTATIN
  15. FESOTERODINE [Concomitant]
     Active Substance: FESOTERODINE
  16. ETHACRYNIC ACID [Concomitant]
     Active Substance: ETHACRYNIC ACID

REACTIONS (2)
  - Foot deformity [Recovered/Resolved]
  - Ulcer [Unknown]

NARRATIVE: CASE EVENT DATE: 20240926
